FAERS Safety Report 7255927-2 (Version None)
Quarter: 2011Q1

REPORT INFORMATION
  Report Type: 
  Country: None (occurrence: None)
  Receive Date: 20110129
  Receipt Date: 20100506
  Transmission Date: 20110831
  Serious: No
  Sender: FDA-Public Use
  Company Number: US-ABBOTT-10P-163-0643188-00

PATIENT
  Age: 22 Year
  Sex: Female

DRUGS (7)
  1. HUMIRA [Suspect]
     Indication: AUTOIMMUNE HEPATITIS
  2. METHOTREXATE [Suspect]
     Indication: AUTOIMMUNE HEPATITIS
     Dosage: NOT REPORTED
  3. MERCAPTOPURINE [Concomitant]
     Indication: AUTOIMMUNE HEPATITIS
     Dosage: NOT REPORTED
  4. HUMIRA [Suspect]
     Indication: CHOLANGITIS SCLEROSING
  5. HUMIRA [Suspect]
     Indication: CROHN'S DISEASE
     Dosage: NOT REPORTED
  6. METHOTREXATE [Suspect]
     Indication: CROHN'S DISEASE
  7. METHOTREXATE [Suspect]
     Indication: CHOLANGITIS SCLEROSING

REACTIONS (2)
  - CROHN'S DISEASE [None]
  - HEPATIC ENZYME ABNORMAL [None]
